FAERS Safety Report 6387300-3 (Version None)
Quarter: 2009Q4

REPORT INFORMATION
  Report Type: 
  Country: None (occurrence: None)
  Receive Date: 20091002
  Receipt Date: 20090925
  Transmission Date: 20100525
  Serious: Yes (Hospitalization)
  Sender: FDA-Public Use
  Company Number: FR-MERCK-0909FRA00084

PATIENT
  Age: 91 Year
  Sex: Female

DRUGS (2)
  1. ZOCOR [Suspect]
     Route: 048
     Dates: start: 19900101, end: 20090901
  2. ACEBUTOLOL HYDROCHLORIDE [Concomitant]
     Route: 048

REACTIONS (3)
  - BLOOD CREATINE PHOSPHOKINASE INCREASED [None]
  - FALL [None]
  - MUSCLE FATIGUE [None]
